FAERS Safety Report 14416208 (Version 1)
Quarter: 2018Q1

REPORT INFORMATION
  Report Type: Spontaneous
  Country: JP (occurrence: JP)
  Receive Date: 20180122
  Receipt Date: 20180122
  Transmission Date: 20180509
  Serious: Yes (Hospitalization, Other)
  Sender: FDA-Public Use
  Company Number: JP-TAKEDA-2017TJP028819

PATIENT
  Age: 88 Year
  Sex: Female
  Weight: 39 kg

DRUGS (9)
  1. ACTOS [Suspect]
     Active Substance: PIOGLITAZONE HYDROCHLORIDE
     Dosage: 30 MG, QD
     Route: 048
     Dates: start: 20171124, end: 20171226
  2. TRAZENTA [Concomitant]
     Active Substance: LINAGLIPTIN
     Dosage: 5 MG, QD, PREPARATION FOR ORAL USE(NOS)
     Route: 048
  3. REBAMIPIDE [Concomitant]
     Active Substance: REBAMIPIDE
     Dosage: PREPARATION FOR ORAL USE(NOS)
     Route: 048
     Dates: end: 20171226
  4. MAGNESIUM OXIDE. [Concomitant]
     Active Substance: MAGNESIUM OXIDE
     Dosage: PREPARATION FOR ORAL USE(NOS)
     Route: 048
     Dates: end: 20171226
  5. SEIBULE [Concomitant]
     Active Substance: MIGLITOL
     Dosage: PREPARATION FOR ORAL USE(NOS)
     Route: 048
     Dates: end: 20171226
  6. LIXIANA [Concomitant]
     Active Substance: EDOXABAN TOSYLATE
     Dosage: PREPARATION FOR ORAL USE(NOS)
     Route: 048
  7. LASIX [Concomitant]
     Active Substance: FUROSEMIDE
     Dosage: PREPARATION FOR ORAL USE(NOS)
     Route: 048
     Dates: start: 20171124, end: 20171226
  8. ACTOS [Suspect]
     Active Substance: PIOGLITAZONE HYDROCHLORIDE
     Indication: PRODUCT USED FOR UNKNOWN INDICATION
     Dosage: 15 MG, QD
     Route: 048
     Dates: start: 20171027, end: 20171123
  9. AVAPRO [Concomitant]
     Active Substance: IRBESARTAN
     Dosage: PREPARATION FOR ORAL USE(NOS)
     Route: 048
     Dates: end: 20171226

REACTIONS (6)
  - Pleural effusion [Recovering/Resolving]
  - Cardiac failure [Recovered/Resolved]
  - Weight increased [Unknown]
  - Contraindicated product administered [Unknown]
  - Chest discomfort [Unknown]
  - Oedema [Recovering/Resolving]

NARRATIVE: CASE EVENT DATE: 201711
